FAERS Safety Report 6172311-3 (Version None)
Quarter: 2009Q2

REPORT INFORMATION
  Report Type: 
  Country: None (occurrence: None)
  Receive Date: 20090424
  Receipt Date: 20081204
  Transmission Date: 20091009
  Serious: No
  Sender: FDA-Public Use
  Company Number: ALL1-2008-03481

PATIENT
  Sex: Female

DRUGS (3)
  1. VYVANSE [Suspect]
     Dosage: 120 OR 150MG, 1X/DAY; QD, ORAL, 60 MG, 1X/DAY, ORAL
     Route: 048
     Dates: start: 20080101, end: 20081001
  2. VYVANSE [Suspect]
     Dosage: 120 OR 150MG, 1X/DAY; QD, ORAL, 60 MG, 1X/DAY, ORAL
     Route: 048
     Dates: start: 20081001
  3. CALCIUM (CALCIUM) [Concomitant]

REACTIONS (3)
  - DRUG INEFFECTIVE [None]
  - MANIA [None]
  - OVERDOSE [None]
